FAERS Safety Report 12447291 (Version 3)
Quarter: 2016Q2

REPORT INFORMATION
  Report Type: Spontaneous
  Country: US (occurrence: US)
  Receive Date: 20160608
  Receipt Date: 20160610
  Transmission Date: 20160815
  Serious: Yes (Other)
  Sender: FDA-Public Use
  Company Number: US-MDT-ADR-2016-01025

PATIENT
  Age: 66 Year
  Sex: Female

DRUGS (7)
  1. HYDROXYZINE [Suspect]
     Active Substance: HYDROXYZINE\HYDROXYZINE HYDROCHLORIDE
     Route: 065
  2. MAVIK [Suspect]
     Active Substance: TRANDOLAPRIL
     Route: 065
  3. ATORVASTATIN [Suspect]
     Active Substance: ATORVASTATIN
     Route: 065
  4. COMPOUNDED BACLOFEN [Suspect]
     Active Substance: BACLOFEN
     Dosage: 177.93UG/DAY
     Route: 037
     Dates: start: 2008
  5. MORPHINE DRUG [Suspect]
     Active Substance: MORPHINE
     Dosage: 13.9MG/DAY
     Route: 037
     Dates: start: 2008
  6. CLONIDINE. [Suspect]
     Active Substance: CLONIDINE
     Dosage: 1.1120MG/DAY
     Route: 037
     Dates: start: 2008
  7. RELISTOR [Suspect]
     Active Substance: METHYLNALTREXONE BROMIDE
     Route: 065

REACTIONS (5)
  - Pain [Unknown]
  - Post procedural swelling [Unknown]
  - Nausea [Unknown]
  - Drug withdrawal syndrome [Unknown]
  - Paraesthesia [Unknown]

NARRATIVE: CASE EVENT DATE: 20160601
